FAERS Safety Report 8952806 (Version 1)
Quarter: 2012Q4

REPORT INFORMATION
  Report Type: 
  Country: BR (occurrence: BR)
  Receive Date: 20121204
  Receipt Date: 20121204
  Transmission Date: 20130627
  Serious: Yes (Other)
  Sender: FDA-Public Use
  Company Number: BR-PFIZER INC-2012301826

PATIENT
  Age: 82 Year
  Sex: Female

DRUGS (7)
  1. FRONTAL [Suspect]
     Dosage: 0.25 mg (one tablet), 2x/day
     Route: 048
     Dates: start: 2009, end: 2011
  2. FRONTAL [Suspect]
     Dosage: 0.5 mg (one tablet), unspecified frequency
     Route: 048
     Dates: start: 2011
  3. ATENSINA [Concomitant]
     Dosage: UNK
  4. DIOVAN [Concomitant]
     Dosage: UNK
  5. LIPITOR [Concomitant]
     Indication: BLOOD CHOLESTEROL INCREASED
     Dosage: 40 mg, 1x/day
     Dates: start: 2011
  6. XALATAN [Concomitant]
     Indication: GLAUCOMA
     Dosage: 3 ug (2 drops), once daily
     Dates: start: 2010
  7. ZOLOFT [Concomitant]
     Dosage: UNK

REACTIONS (3)
  - Blood pressure increased [Unknown]
  - Anxiety [Unknown]
  - Somnolence [Unknown]
